FAERS Safety Report 5599817-X (Version None)
Quarter: 2008Q1

REPORT INFORMATION
  Report Type: 
  Country: None (occurrence: None)
  Receive Date: 20080118
  Receipt Date: 20080118
  Transmission Date: 20080703
  Serious: Yes (Hospitalization)
  Sender: FDA-Public Use
  Company Number: None

PATIENT
  Sex: Female
  Weight: 46.1 kg

DRUGS (6)
  1. DAUNORUBICIN HCL [Suspect]
     Dosage: 131.5 MG
  2. CYTARABINE [Suspect]
     Dosage: 70 MG
     Route: 037
  3. METHOTREXATE [Suspect]
     Dosage: 30 MG
     Route: 037
  4. PEG-L-ASPARAGINASE (K-H) [Suspect]
     Dosage: 3250 MG
  5. PREDNISONE TAB [Suspect]
     Dosage: 1560 MG
  6. VINCRISTINE SULFATE [Suspect]
     Dosage: 7.9 MG

REACTIONS (17)
  - ASPERGILLOSIS [None]
  - ASPIRATION TRACHEAL [None]
  - BLOOD PRESSURE DECREASED [None]
  - BRAIN OEDEMA [None]
  - CAVERNOUS SINUS THROMBOSIS [None]
  - DEPRESSED LEVEL OF CONSCIOUSNESS [None]
  - DIABETES MELLITUS [None]
  - EAR DISORDER [None]
  - ELECTROENCEPHALOGRAM ABNORMAL [None]
  - FUNGUS SPUTUM TEST POSITIVE [None]
  - HERPES SIMPLEX [None]
  - ILL-DEFINED DISORDER [None]
  - NEUTROPENIA [None]
  - PSEUDOMONAL SEPSIS [None]
  - REFUSAL OF TREATMENT BY RELATIVE [None]
  - SINUSITIS FUNGAL [None]
  - THROMBOSIS [None]
